FAERS Safety Report 8522195-0 (Version None)
Quarter: 2012Q3

REPORT INFORMATION
  Report Type: 
  Country: None (occurrence: None)
  Receive Date: 20120709
  Receipt Date: 20120621
  Transmission Date: 20120928
  Serious: Yes (Other)
  Sender: FDA-Public Use
  Company Number: DSA_58175_2012

PATIENT

DRUGS (3)
  1. ATIVAN [Suspect]
     Indication: PRODUCT USED FOR UNKNOWN INDICATION
     Dosage: (DF)
  2. HYDROCODONE [Concomitant]
  3. CHANTIX [Concomitant]

REACTIONS (5)
  - FEELINGS OF WORTHLESSNESS [None]
  - SUICIDAL IDEATION [None]
  - HOSTILITY [None]
  - APATHY [None]
  - SOCIAL AVOIDANT BEHAVIOUR [None]
